FAERS Safety Report 5993508-9 (Version None)
Quarter: 2008Q4

REPORT INFORMATION
  Report Type: 
  Country: None (occurrence: None)
  Receive Date: 20081212
  Receipt Date: 20081210
  Transmission Date: 20090506
  Serious: Yes (Other)
  Sender: FDA-Public Use
  Company Number: US-ASTRAZENECA-2008UW27092

PATIENT
  Age: 35 Year
  Sex: Male
  Weight: 113.4 kg

DRUGS (10)
  1. SEROQUEL [Suspect]
     Indication: BIPOLAR DISORDER
     Route: 048
  2. SEROQUEL [Suspect]
     Indication: DEPRESSION
     Route: 048
  3. ZYPREXA [Concomitant]
  4. ZYPREXA [Concomitant]
  5. WELLBUTRIN SR [Concomitant]
  6. LITHIUM CARBONATE [Concomitant]
  7. ESKALITH [Concomitant]
  8. DEPAKOTE [Concomitant]
  9. FLUOXETINE [Concomitant]
  10. ZOLOFT [Concomitant]

REACTIONS (5)
  - CHEST PAIN [None]
  - CORONARY ARTERY OCCLUSION [None]
  - GASTROOESOPHAGEAL REFLUX DISEASE [None]
  - OBESITY [None]
  - TYPE 2 DIABETES MELLITUS [None]
